FAERS Safety Report 8102347-4 (Version None)
Quarter: 2012Q1

REPORT INFORMATION
  Report Type: 
  Country: None (occurrence: None)
  Receive Date: 20120201
  Receipt Date: 20120128
  Transmission Date: 20120608
  Serious: No
  Sender: FDA-Public Use
  Company Number: US-PFIZER INC-2012023572

PATIENT
  Sex: Female
  Weight: 71 kg

DRUGS (2)
  1. SYNTHROID [Concomitant]
     Dosage: UNK
  2. CYTOMEL [Suspect]
     Indication: THYROID HORMONE REPLACEMENT THERAPY
     Dosage: 6.25 UG, 1X/DAY
     Route: 048

REACTIONS (3)
  - CIRCUMSTANCE OR INFORMATION CAPABLE OF LEADING TO MEDICATION ERROR [None]
  - DIZZINESS [None]
  - NAUSEA [None]
